FAERS Safety Report 8103483-9 (Version None)
Quarter: 2012Q1

REPORT INFORMATION
  Report Type: 
  Country: None (occurrence: None)
  Receive Date: 20120201
  Receipt Date: 20120124
  Transmission Date: 20120608
  Serious: Yes (Other)
  Sender: FDA-Public Use
  Company Number: PHHY2011JP107307

PATIENT
  Sex: Female

DRUGS (3)
  1. ZOLEDRONIC ACID [Suspect]
     Indication: METASTASES TO BONE
     Dosage: 4 MG, EVERY FOUR WEEKS
     Route: 042
     Dates: start: 20070918, end: 20081006
  2. NOLVADEX [Concomitant]
     Indication: BREAST CANCER
     Dosage: 20 MG, UNK
     Route: 048
     Dates: start: 20070717, end: 20081215
  3. LEUPROLIDE ACETATE [Concomitant]
     Indication: BREAST CANCER
     Dosage: 3.75 MG, UNK
     Route: 042
     Dates: start: 20070717, end: 20081201

REACTIONS (2)
  - DENTAL CARIES [None]
  - OSTEOMYELITIS [None]
